FAERS Safety Report 21768563 (Version 1)
Quarter: 2022Q4

REPORT INFORMATION
  Report Type: Report from Study
  Country: US (occurrence: US)
  Receive Date: 20221222
  Receipt Date: 20221222
  Transmission Date: 20230113
  Serious: Yes (Hospitalization, Other)
  Sender: FDA-Public Use
  Company Number: US-ALLERGAN-2241707US

PATIENT
  Sex: Female

DRUGS (2)
  1. THYROID, UNSPECIFIED [Suspect]
     Active Substance: THYROID, UNSPECIFIED
     Indication: Product used for unknown indication
     Dosage: 90 MG, QD
     Route: 048
  2. METOPROLOL [Concomitant]
     Active Substance: METOPROLOL
     Dosage: UNK

REACTIONS (12)
  - Myocardial infarction [Unknown]
  - Atrial fibrillation [Recovering/Resolving]
  - Breast cancer [Unknown]
  - Cardiac disorder [Unknown]
  - Dyspnoea [Unknown]
  - Back pain [Unknown]
  - Hospitalisation [Unknown]
  - Contusion [Unknown]
  - Haematoma [Unknown]
  - Back injury [Unknown]
  - Accident [Unknown]
  - Drug ineffective [Unknown]

NARRATIVE: CASE EVENT DATE: 20160101
